FAERS Safety Report 18509184 (Version 1)
Quarter: 2020Q4

REPORT INFORMATION
  Report Type: Spontaneous
  Country: US (occurrence: US)
  Receive Date: 20201117
  Receipt Date: 20201117
  Transmission Date: 20210114
  Serious: No
  Sender: FDA-Public Use
  Company Number: US-AUROBINDO-AUR-APL-2020-047215

PATIENT
  Sex: Female

DRUGS (1)
  1. MODAFINIL TABLETS USP 100MG [Suspect]
     Active Substance: MODAFINIL
     Indication: SLEEP DISORDER
     Dosage: UNK
     Route: 065

REACTIONS (6)
  - Illness [Recovered/Resolved]
  - Vomiting [Recovered/Resolved]
  - Product substitution issue [Unknown]
  - Gait disturbance [Unknown]
  - Nausea [Recovered/Resolved]
  - Drug ineffective [Unknown]
